FAERS Safety Report 15916959 (Version 1)
Quarter: 2019Q1

REPORT INFORMATION
  Report Type: Spontaneous
  Country: US (occurrence: US)
  Receive Date: 20190205
  Receipt Date: 20190205
  Transmission Date: 20190417
  Serious: No
  Sender: FDA-Public Use
  Company Number: US-AMGEN-USASP2019015186

PATIENT
  Age: 76 Year
  Sex: Female

DRUGS (2)
  1. PROLIA [Suspect]
     Active Substance: DENOSUMAB
     Indication: OSTEOPOROSIS POSTMENOPAUSAL
     Dosage: 60 MG, Q6MO
     Route: 065
     Dates: start: 2016, end: 2018
  2. LISINOPRIL. [Concomitant]
     Active Substance: LISINOPRIL
     Indication: BLOOD PRESSURE MEASUREMENT
     Dosage: UNK

REACTIONS (5)
  - Pain [Unknown]
  - Arthralgia [Unknown]
  - Dysphonia [Unknown]
  - Groin pain [Unknown]
  - Gait disturbance [Unknown]
